FAERS Safety Report 10187478 (Version 1)
Quarter: 2014Q2

REPORT INFORMATION
  Report Type: Spontaneous
  Country: US (occurrence: US)
  Receive Date: 20140522
  Receipt Date: 20140522
  Transmission Date: 20141212
  Serious: No
  Sender: FDA-Public Use
  Company Number: US-SANOFI-AVENTIS-2013SA080162

PATIENT
  Age: 78 Year
  Sex: Male

DRUGS (3)
  1. LANTUS [Suspect]
     Dosage: PRODUCT STARTED FROM 15 YEARS AGO. PRODUCT STOPPED 7-8 YEARS AGO.
     Route: 051
  2. LANTUS SOLOSTAR [Suspect]
     Indication: TYPE 1 DIABETES MELLITUS
     Dosage: PRODUCT STARTED 7-8 YEARS AGO. DOSE : 50 AM, 52 PM
     Route: 051
  3. SOLOSTAR [Concomitant]
     Indication: TYPE 1 DIABETES MELLITUS
     Dosage: PRODUCT STARTED 7-8 YEARS AGO.

REACTIONS (1)
  - Visual acuity reduced [Unknown]
